FAERS Safety Report 9214592 (Version 1)
Quarter: 2013Q2

REPORT INFORMATION
  Report Type: Spontaneous
  Country: FR (occurrence: None)
  Receive Date: 20130403
  Receipt Date: 20130403
  Transmission Date: 20140414
  Serious: Yes (Death, Hospitalization)
  Sender: FDA-Public Use
  Company Number: 7200494

PATIENT
  Age: 72 Year
  Sex: 0

DRUGS (5)
  1. LEVOTHYROX [Suspect]
     Indication: PRODUCT USED FOR UNKNOWN INDICATION
     Dosage: LONG TIME AGO?1DF, 1IN 1 D
     Route: 048
  2. PANTOPRAZOLE [Suspect]
     Indication: PRODUCT USED FOR UNKNOWN INDICATION
     Dosage: LONG TIME AGO?1 IN 1 D
     Route: 048
  3. AMIODARONE [Suspect]
     Indication: PRODUCT USED FOR UNKNOWN INDICATION
     Dosage: 1 IN  1 D?LONG-TIME AGO
     Route: 048
  4. KARDEGIC [Suspect]
     Indication: PRODUCT USED FOR UNKNOWN INDICATION
     Dosage: 1 IN 1 D
     Route: 048
  5. PERINDOPRIL [Suspect]
     Indication: PRODUCT USED FOR UNKNOWN INDICATION
     Dosage: 1 IN 1 D?LONG TIME AGO
     Route: 048
     Dates: start: 20120105

REACTIONS (6)
  - Interstitial lung disease [None]
  - Shock [None]
  - Respiratory failure [None]
  - Lung disorder [None]
  - Faecaloma [None]
  - Vomiting [None]
